FAERS Safety Report 6601548-1 (Version None)
Quarter: 2010Q1

REPORT INFORMATION
  Report Type: 
  Country: None (occurrence: None)
  Receive Date: 20100225
  Receipt Date: 20091203
  Transmission Date: 20100710
  Serious: No
  Sender: FDA-Public Use
  Company Number: US-KINGPHARMUSA00001-K200901525

PATIENT
  Age: 57 Year
  Sex: Male
  Weight: 111.11 kg

DRUGS (5)
  1. FLECTOR [Suspect]
     Indication: ARTHRALGIA
     Dosage: 1-2 PATCH, EVERY 24 HOURS PRN
     Route: 061
     Dates: start: 20080101, end: 20090101
  2. INFLUENZA [Interacting]
     Dosage: UNK, SINGLE
     Dates: start: 20090201, end: 20090201
  3. VITAMIN E [Concomitant]
     Dosage: UNK
  4. FLOMAX [Concomitant]
     Dosage: UNK
  5. ANTIHYPERTENSIVES [Concomitant]
     Indication: HYPERTENSION
     Dosage: UNK

REACTIONS (2)
  - PRURITUS [None]
  - RASH [None]
